FAERS Safety Report 22947463 (Version 3)
Quarter: 2023Q4

REPORT INFORMATION
  Report Type: Spontaneous
  Country: GT (occurrence: GT)
  Receive Date: 20230915
  Receipt Date: 20231208
  Transmission Date: 20240109
  Serious: Yes (Other)
  Sender: FDA-Public Use
  Company Number: GT-002147023-NVSC2022GT205839

PATIENT
  Age: 49 Year
  Sex: Female

DRUGS (5)
  1. KISQALI [Suspect]
     Active Substance: RIBOCICLIB
     Indication: Breast cancer
     Dosage: 600 MG, QD
     Route: 048
     Dates: start: 202002
  2. KISQALI [Suspect]
     Active Substance: RIBOCICLIB
     Dosage: 600 MG, QD
     Route: 048
     Dates: start: 20200909, end: 20231019
  3. KISQALI [Suspect]
     Active Substance: RIBOCICLIB
     Dosage: 600 MG, QD
     Route: 048
     Dates: start: 202008
  4. LETROZOLE [Suspect]
     Active Substance: LETROZOLE
     Indication: Product used for unknown indication
     Dosage: UNK
     Route: 065
  5. ZOLEDRONIC ACID [Suspect]
     Active Substance: ZOLEDRONIC ACID
     Indication: Product used for unknown indication
     Dosage: UNK, Q3MO
     Route: 065

REACTIONS (37)
  - Computerised tomogram abnormal [Unknown]
  - Metastases to bone [Unknown]
  - White blood cell count decreased [Unknown]
  - Neutropenia [Unknown]
  - Muscle atrophy [Unknown]
  - Paraesthesia [Recovering/Resolving]
  - Pain [Unknown]
  - Arthralgia [Not Recovered/Not Resolved]
  - Skin atrophy [Unknown]
  - Discomfort [Unknown]
  - Ephelides [Recovering/Resolving]
  - Decreased immune responsiveness [Unknown]
  - Abdominal discomfort [Recovering/Resolving]
  - Tumour marker increased [Unknown]
  - Weight decreased [Unknown]
  - Pain in extremity [Not Recovered/Not Resolved]
  - Depressed mood [Unknown]
  - Insomnia [Unknown]
  - Malaise [Unknown]
  - Gastrooesophageal reflux disease [Unknown]
  - Disorientation [Unknown]
  - Illness [Unknown]
  - Abdominal pain upper [Unknown]
  - Decreased appetite [Unknown]
  - Dry skin [Unknown]
  - Alopecia [Unknown]
  - Nausea [Unknown]
  - Fatigue [Unknown]
  - Anaemia [Unknown]
  - Haemoglobin decreased [Unknown]
  - Peripheral swelling [Unknown]
  - Immunology test abnormal [Unknown]
  - Neck pain [Unknown]
  - Inflammation [Not Recovered/Not Resolved]
  - Product availability issue [Unknown]
  - Somnolence [Unknown]
  - Neuralgia [Recovering/Resolving]

NARRATIVE: CASE EVENT DATE: 20200901
